FAERS Safety Report 10262862 (Version 2)
Quarter: 2014Q2

REPORT INFORMATION
  Report Type: Report from Study
  Country: US (occurrence: US)
  Receive Date: 20140626
  Receipt Date: 20140626
  Transmission Date: 20141212
  Serious: Yes (Death, Hospitalization)
  Sender: FDA-Public Use
  Company Number: US-MYLANLABS-2013S1020181

PATIENT
  Sex: Female

DRUGS (8)
  1. CLOZAPINE TABLETS [Suspect]
     Indication: SCHIZOPHRENIA
     Route: 048
  2. LEXAPRO [Concomitant]
  3. PROCHLOR [Concomitant]
  4. KLOR CON [Concomitant]
     Dosage: ER
  5. VITAMIN D3 [Concomitant]
  6. PRILOSEC [Concomitant]
     Dosage: OTC
  7. LEVOTHYROXIN [Concomitant]
  8. BISACODYL [Concomitant]

REACTIONS (1)
  - Death [Fatal]
